FAERS Safety Report 19490535 (Version 3)
Quarter: 2021Q4

REPORT INFORMATION
  Report Type: Spontaneous
  Country: FR (occurrence: FR)
  Receive Date: 20210705
  Receipt Date: 20211001
  Transmission Date: 20220304
  Serious: Yes (Hospitalization, Other)
  Sender: FDA-Public Use
  Company Number: FR-AFSSAPS-MP20214806

PATIENT
  Age: 60 Year
  Sex: Male
  Weight: 135 kg

DRUGS (13)
  1. ENOXAPARIN [Suspect]
     Active Substance: ENOXAPARIN
     Indication: Thrombosis prophylaxis
     Dosage: 0.4 MILLILITER, TWO TIMES A DAY
     Route: 058
     Dates: start: 20210512, end: 20210614
  2. ENOXAPARIN [Suspect]
     Active Substance: ENOXAPARIN
     Dosage: 0.6 MILLILITER, ONCE A DAY
     Dates: start: 20210622
  3. LANSOPRAZOLE [Suspect]
     Active Substance: LANSOPRAZOLE
     Indication: Product used for unknown indication
     Dosage: 15 MILLIGRAM, ONCE A DAY
     Route: 048
     Dates: start: 20210512, end: 20210609
  4. ACETAMINOPHEN [Suspect]
     Active Substance: ACETAMINOPHEN
     Indication: Pain
     Dosage: UNK
     Route: 048
     Dates: start: 20210512
  5. CEFEPIME [Suspect]
     Active Substance: CEFEPIME HYDROCHLORIDE
     Indication: Device related infection
     Dosage: 2 GRAM, 3 TIMES A DAY
     Route: 041
     Dates: start: 20210512, end: 20210517
  6. DAPTOMYCIN [Suspect]
     Active Substance: DAPTOMYCIN
     Indication: Device related infection
     Dosage: 1 GRAM, ONCE A DAY
     Route: 041
     Dates: start: 20210512, end: 20210601
  7. DAPTOMYCIN [Suspect]
     Active Substance: DAPTOMYCIN
     Dosage: 1 GRAM, ONCE A DAY
     Route: 041
     Dates: start: 20210615
  8. KARDEGIC [Suspect]
     Active Substance: ASPIRIN DL-LYSINE
     Indication: Myocardial ischaemia
     Dosage: 75 MILLIGRAM, ONCE A DAY
     Route: 048
     Dates: start: 20210602, end: 20210613
  9. KARDEGIC [Suspect]
     Active Substance: ASPIRIN DL-LYSINE
     Dosage: 75 MILLIGRAM, ONCE A DAY
     Route: 048
     Dates: start: 20210622
  10. RIFAMPIN [Suspect]
     Active Substance: RIFAMPIN
     Indication: Device related infection
     Dosage: 600 MILLIGRAM, TWO TIMES A DAY
     Route: 048
     Dates: start: 20210602, end: 20210615
  11. TEICOPLANIN [Suspect]
     Active Substance: TEICOPLANIN
     Indication: Device related infection
     Dosage: 6 MILLIGRAM/KILOGRAM, TWO TIMES A DAY
     Route: 040
     Dates: start: 20210602, end: 20210609
  12. TEICOPLANIN [Suspect]
     Active Substance: TEICOPLANIN
     Dosage: 6 MILLIGRAM/KILOGRAM, ONCE A DAY
     Route: 040
     Dates: start: 20210609, end: 20210615
  13. CLOPIDOGREL HYDROCHLORIDE [Concomitant]
     Active Substance: CLOPIDOGREL HYDROCHLORIDE
     Indication: Myocardial ischaemia
     Dosage: 75 MILLIGRAM, ONCE A DAY
     Route: 048
     Dates: start: 2021

REACTIONS (2)
  - Thrombocytopenia [Recovered/Resolved]
  - Acute kidney injury [Recovered/Resolved]

NARRATIVE: CASE EVENT DATE: 20210612
